FAERS Safety Report 24543070 (Version 2)
Quarter: 2024Q4

REPORT INFORMATION
  Report Type: Report from Study
  Country: IT (occurrence: IT)
  Receive Date: 20241024
  Receipt Date: 20241030
  Transmission Date: 20250114
  Serious: Yes (Death, Other)
  Sender: UCB
  Company Number: IT-UCBSA-2024054153

PATIENT
  Age: 39 Year
  Sex: Male
  Weight: 130 kg

DRUGS (7)
  1. ZILUCOPLAN [Suspect]
     Active Substance: ZILUCOPLAN
     Indication: Myasthenia gravis
     Dosage: UNK
     Dates: start: 2024, end: 202409
  2. PREDNISONE [Concomitant]
     Active Substance: PREDNISONE
     Indication: Myasthenia gravis
     Dosage: 50 MILLIGRAM, ONCE DAILY (QD)
     Dates: start: 2019, end: 2024
  3. MESTINON [Concomitant]
     Active Substance: PYRIDOSTIGMINE BROMIDE
     Indication: Myasthenia gravis
     Dosage: 60 MILLIGRAM, 6X/DAY
     Dates: start: 2019, end: 2024
  4. ALDACTONE [Concomitant]
     Active Substance: SPIRONOLACTONE
     Indication: Hypertension
     Dosage: 200 MILLIGRAM, 2X/DAY (BID)
     Dates: start: 2019, end: 2024
  5. LASIX [Concomitant]
     Active Substance: FUROSEMIDE
     Indication: Hypertension
     Dosage: 25 MILLIGRAM, ONCE DAILY (QD)
     Dates: start: 2019, end: 2024
  6. ENOXAPARIN SODIUM [Concomitant]
     Active Substance: ENOXAPARIN SODIUM
     Indication: Thrombosis prophylaxis
     Dosage: 4000 INTERNATIONAL UNIT, ONCE DAILY (QD)
     Dates: start: 2019, end: 2024
  7. PREDNISONE [Concomitant]
     Active Substance: PREDNISONE
     Indication: Myasthenia gravis
     Dosage: UNK
     Dates: start: 2019

REACTIONS (1)
  - Cardiopulmonary failure [Fatal]

NARRATIVE: CASE EVENT DATE: 20240930
